FAERS Safety Report 5168149-6 (Version None)
Quarter: 2006Q4

REPORT INFORMATION
  Report Type: 
  Country: None (occurrence: None)
  Receive Date: 20061208
  Receipt Date: 20061025
  Transmission Date: 20070319
  Serious: Yes (Death, Other)
  Sender: FDA-Public Use
  Company Number: US-PURDUE-USA_2006_0025503

PATIENT
  Age: 30 Year
  Sex: Male
  Weight: 75 kg

DRUGS (4)
  1. OXYCODONE HYDROCHLORIDE [Suspect]
     Indication: DRUG ABUSER
     Dosage: UNK, UNK
  2. METAMFETAMINE [Suspect]
     Indication: DRUG ABUSER
     Dosage: UNK, UNK
  3. VALIUM [Suspect]
     Indication: DRUG ABUSER
     Dosage: UNK, UNK
  4. MARIJUANA [Suspect]

REACTIONS (5)
  - AGGRESSION [None]
  - GUN SHOT WOUND [None]
  - SUBSTANCE ABUSE [None]
  - SUICIDAL BEHAVIOUR [None]
  - VICTIM OF HOMICIDE [None]
